FAERS Safety Report 5373767-6 (Version None)
Quarter: 2007Q2

REPORT INFORMATION
  Report Type: 
  Country: None (occurrence: None)
  Receive Date: 20070615
  Receipt Date: 20060616
  Transmission Date: 20071010
  Serious: Yes (Other)
  Sender: FDA-Public Use
  Company Number: 200520523US

PATIENT
  Age: 89 Year
  Sex: Female
  Weight: 45 kg

DRUGS (9)
  1. LANTUS [Suspect]
     Indication: DIABETES MELLITUS NON-INSULIN-DEPENDENT
     Dosage: 20 U
     Dates: start: 20051209
  2. LANTUS [Suspect]
     Indication: DIABETES MELLITUS NON-INSULIN-DEPENDENT
     Dosage: 18 U
  3. LANTUS [Suspect]
     Indication: DIABETES MELLITUS NON-INSULIN-DEPENDENT
     Dosage: 15 U HS
  4. OPTICLIK [Suspect]
     Dates: start: 20051209
  5. FERROUS SULFATE [Concomitant]
  6. CAPTOPRIL [Concomitant]
  7. GLIPIZIDE [Concomitant]
  8. METOPROLOL SUCCINATE [Concomitant]
  9. PREVACID [Concomitant]

REACTIONS (3)
  - BLOOD GLUCOSE INCREASED [None]
  - HYPERGLYCAEMIA [None]
  - HYPOGLYCAEMIA [None]
